FAERS Safety Report 9291311 (Version 1)
Quarter: 2013Q2

REPORT INFORMATION
  Report Type: Spontaneous
  Country: MA (occurrence: MA)
  Receive Date: 20130515
  Receipt Date: 20130515
  Transmission Date: 20140414
  Serious: Yes (Hospitalization)
  Sender: FDA-Public Use
  Company Number: MA-ABBOTT-13P-110-1045757-00

PATIENT
  Age: 35 Year
  Sex: Male

DRUGS (6)
  1. HUMIRA [Suspect]
     Indication: ANKYLOSING SPONDYLITIS
     Route: 058
     Dates: start: 201211, end: 201212
  2. ETORICOXIB [Concomitant]
     Indication: ARTHRALGIA
     Route: 048
     Dates: start: 2010
  3. METHOTREXATE [Concomitant]
     Indication: ANKYLOSING SPONDYLITIS
  4. TERBINAFINE [Concomitant]
     Indication: ONYCHOMYCOSIS
     Route: 048
     Dates: start: 2012
  5. TERBINAFINE [Concomitant]
     Route: 062
     Dates: start: 2012
  6. VITAMIN D [Concomitant]
     Indication: VITAMIN D DECREASED
     Route: 048
     Dates: start: 20121212

REACTIONS (4)
  - Diarrhoea [Recovering/Resolving]
  - Infection [Not Recovered/Not Resolved]
  - Onychomycosis [Unknown]
  - Vitamin D decreased [Unknown]
